FAERS Safety Report 8076394-5 (Version None)
Quarter: 2012Q1

REPORT INFORMATION
  Report Type: 
  Country: None (occurrence: None)
  Receive Date: 20120127
  Receipt Date: 20120127
  Transmission Date: 20120608
  Serious: Yes (Life-Threatening, Hospitalization)
  Sender: FDA-Public Use
  Company Number: None

PATIENT
  Age: 27 Year
  Sex: Female
  Weight: 62.595 kg

DRUGS (2)
  1. TACLONEX SCALP [Suspect]
     Indication: PSORIASIS
     Route: 061
     Dates: start: 20111220, end: 20111225
  2. TACLONEX SCALP [Concomitant]
     Route: 061
     Dates: start: 20111220, end: 20111225

REACTIONS (1)
  - CEREBROVASCULAR ACCIDENT [None]
